FAERS Safety Report 4397249-3 (Version None)
Quarter: 2004Q2

REPORT INFORMATION
  Report Type: 
  Country: None (occurrence: None)
  Receive Date: 20040621
  Receipt Date: 20040223
  Transmission Date: 20050107
  Serious: Yes (Death)
  Sender: FDA-Public Use
  Company Number: USA-2004-0013304

PATIENT
  Age: 52 Year
  Sex: Female
  Weight: 55.3 kg

DRUGS (2)
  1. OXYCODONE HCL [Suspect]
  2. FENTANYL [Suspect]
     Dosage: CUTANEOUS
     Route: 003

REACTIONS (1)
  - ACCIDENTAL OVERDOSE [None]
